FAERS Safety Report 20645672 (Version 1)
Quarter: 2022Q1

REPORT INFORMATION
  Report Type: Spontaneous
  Country: DE (occurrence: DE)
  Receive Date: 20220328
  Receipt Date: 20220328
  Transmission Date: 20220423
  Serious: Yes (Hospitalization)
  Sender: FDA-Public Use
  Company Number: DE-BoehringerIngelheim-2022-BI-161847

PATIENT
  Sex: Male

DRUGS (2)
  1. OFEV [Suspect]
     Active Substance: NINTEDANIB
     Indication: Idiopathic pulmonary fibrosis
     Dates: start: 202101, end: 202104
  2. OFEV [Suspect]
     Active Substance: NINTEDANIB
     Dates: start: 202104

REACTIONS (3)
  - Gastrointestinal haemorrhage [Unknown]
  - Asthenia [Unknown]
  - Nausea [Unknown]
